FAERS Safety Report 7016438-2 (Version None)
Quarter: 2010Q3

REPORT INFORMATION
  Report Type: 
  Country: None (occurrence: None)
  Receive Date: 20100923
  Receipt Date: 20100916
  Transmission Date: 20110219
  Serious: Yes (Disabling)
  Sender: FDA-Public Use
  Company Number: 2010SP049742

PATIENT
  Age: 63 Year
  Sex: Male

DRUGS (8)
  1. DIPROSONE [Suspect]
     Indication: ERYSIPELAS
     Dosage: 1 DF; BID; TOP
     Route: 061
     Dates: start: 20100604, end: 20100608
  2. AMOXICILLIN SODIUM (AMOXICILLIN SODIUM) [Suspect]
     Indication: ERYSIPELAS
     Dosage: 1 GM; BID; PO
     Route: 048
     Dates: start: 20100604, end: 20100605
  3. CETIRIZINE DIHCL (CETIRIZINE HYDROCHLORIDE) [Suspect]
     Indication: ERYSIPELAS
     Dosage: 1 DF; QD; PO
     Route: 048
     Dates: start: 20100604, end: 20100608
  4. ISOPTIN [Concomitant]
  5. ATACAND [Concomitant]
  6. KARDEGIC [Concomitant]
  7. PRAVASTATIN SODIUM [Concomitant]
  8. MOPRAL [Concomitant]

REACTIONS (4)
  - ACUTE GENERALISED EXANTHEMATOUS PUSTULOSIS [None]
  - ASTHENIA [None]
  - MALAISE [None]
  - TACHYCARDIA [None]
